FAERS Safety Report 7396759-4 (Version None)
Quarter: 2011Q2

REPORT INFORMATION
  Report Type: 
  Country: None (occurrence: None)
  Receive Date: 20110406
  Receipt Date: 20110325
  Transmission Date: 20111010
  Serious: Yes (Hospitalization)
  Sender: FDA-Public Use
  Company Number: DE-SANOFI-AVENTIS-2011SA017959

PATIENT
  Age: 80 Year
  Sex: Female
  Weight: 72 kg

DRUGS (5)
  1. BISOPROLOL FUMARATE [Concomitant]
     Indication: HYPERTENSION
     Dosage: 0-0-1
     Route: 048
  2. AMLODIPINE [Concomitant]
     Indication: HYPERTENSION
     Dosage: 1-0-1
     Route: 048
  3. MULTAQ [Suspect]
     Dosage: 1
     Route: 048
  4. OXYCODONE HYDROCHLORIDE [Concomitant]
     Dosage: 1 DF = 5/2.5 MG
     Route: 048
  5. SIMVASTATIN [Concomitant]
     Indication: HYPERLIPIDAEMIA
     Dosage: 0-0-1
     Route: 048

REACTIONS (1)
  - THROMBOCYTOPENIA [None]
